FAERS Safety Report 17041692 (Version 2)
Quarter: 2019Q4

REPORT INFORMATION
  Report Type: Report from Study
  Country: US (occurrence: US)
  Receive Date: 20191118
  Receipt Date: 20191212
  Transmission Date: 20200122
  Serious: Yes (Death, Hospitalization, Other)
  Sender: FDA-Public Use
  Company Number: US-ASTELLAS-2019US045330

PATIENT
  Sex: Male

DRUGS (1)
  1. ASP2215 [Suspect]
     Active Substance: GILTERITINIB
     Indication: ACUTE MYELOID LEUKAEMIA
     Route: 048
     Dates: start: 20191012, end: 201910

REACTIONS (6)
  - Death [Fatal]
  - Cardiac failure [Unknown]
  - Pneumonia [Unknown]
  - Pleural effusion [Unknown]
  - Pneumothorax [Unknown]
  - Fall [Unknown]
